FAERS Safety Report 12441963 (Version 2)
Quarter: 2016Q2

REPORT INFORMATION
  Report Type: Spontaneous
  Country: US (occurrence: US)
  Receive Date: 20160607
  Receipt Date: 20160607
  Transmission Date: 20160815
  Serious: Yes (Hospitalization, Other)
  Sender: FDA-Public Use
  Company Number: US-ACTAVIS-2016-11675

PATIENT
  Age: 73 Year
  Sex: Female

DRUGS (2)
  1. CARBOPLATIN (WATSON LABORATORIES) [Suspect]
     Active Substance: CARBOPLATIN
     Indication: UTERINE CANCER
     Dosage: FIRST CYCLE
     Route: 065
  2. PACLITAXEL (ATLLC) [Suspect]
     Active Substance: PACLITAXEL
     Indication: UTERINE CANCER
     Dosage: FIRST CYCLE
     Route: 065

REACTIONS (2)
  - Urosepsis [Unknown]
  - Neutropenia [Unknown]
